FAERS Safety Report 4636491-0 (Version None)
Quarter: 2005Q2

REPORT INFORMATION
  Report Type: 
  Country: None (occurrence: None)
  Receive Date: 20050325
  Receipt Date: 20050127
  Transmission Date: 20051028
  Serious: No
  Sender: FDA-Public Use
  Company Number: USA040466072

PATIENT
  Age: 71 Year
  Sex: Female
  Weight: 58 kg

DRUGS (3)
  1. FORTEO [Suspect]
     Indication: OSTEOPOROSIS
     Dosage: 20 UG/IM DAY
     Dates: start: 20040303
  2. ZOCOR [Concomitant]
  3. CALCIUM WITH VITAMIN D [Concomitant]

REACTIONS (6)
  - ARTHRALGIA [None]
  - BACK PAIN [None]
  - FEELING JITTERY [None]
  - MIDDLE INSOMNIA [None]
  - PAIN [None]
  - PARAESTHESIA [None]
